FAERS Safety Report 5735368-7 (Version None)
Quarter: 2008Q2

REPORT INFORMATION
  Report Type: 
  Country: None (occurrence: None)
  Receive Date: 20080508
  Receipt Date: 20080508
  Transmission Date: 20081010
  Serious: Yes (Hospitalization)
  Sender: FDA-Public Use
  Company Number: None

PATIENT
  Age: 51 Year
  Sex: Male
  Weight: 127.0072 kg

DRUGS (1)
  1. DIGITEK  0.25MG  BERTEK [Suspect]
     Indication: ATRIAL FLUTTER
     Dosage: 1 TABLET DAILY PO
     Route: 048
     Dates: start: 20061015, end: 20080323

REACTIONS (3)
  - DIZZINESS [None]
  - NAUSEA [None]
  - PHARMACEUTICAL PRODUCT COMPLAINT [None]
